FAERS Safety Report 11697912 (Version 1)
Quarter: 2015Q4

REPORT INFORMATION
  Report Type: Spontaneous
  Country: US (occurrence: US)
  Receive Date: 20151104
  Receipt Date: 20151104
  Transmission Date: 20160304
  Serious: No
  Sender: FDA-Public Use
  Company Number: US-APOPHARMA USA, INC.-2012AP000503

PATIENT
  Sex: Female
  Weight: 52 kg

DRUGS (3)
  1. FERRIPROX [Suspect]
     Active Substance: DEFERIPRONE
     Indication: IRON OVERLOAD
     Route: 048
     Dates: start: 20120111
  2. FERRIPROX [Suspect]
     Active Substance: DEFERIPRONE
     Indication: CONGENITAL APLASTIC ANAEMIA
  3. INSULIN [Concomitant]
     Active Substance: INSULIN NOS

REACTIONS (1)
  - Abdominal discomfort [Unknown]
